FAERS Safety Report 9715624 (Version 3)
Quarter: 2015Q2

REPORT INFORMATION
  Report Type: Report from Study
  Country: US (occurrence: US)
  Receive Date: 20131127
  Receipt Date: 20150422
  Transmission Date: 20150821
  Serious: Yes (Hospitalization, Other)
  Sender: FDA-Public Use
  Company Number: US-BRISTOL-MYERS SQUIBB COMPANY-19835420

PATIENT
  Age: 75 Year
  Sex: Female
  Weight: 73 kg

DRUGS (1)
  1. IPILIMUMAB [Suspect]
     Active Substance: IPILIMUMAB
     Indication: METASTATIC MALIGNANT MELANOMA
     Dosage: 10 MG/KG, UNK
     Route: 042
     Dates: start: 20110606

REACTIONS (7)
  - Anal inflammation [Recovering/Resolving]
  - Ileus [Recovering/Resolving]
  - Hyponatraemia [Recovering/Resolving]
  - Hypopituitarism [Recovering/Resolving]
  - Dehydration [Recovering/Resolving]
  - Muscular weakness [Recovering/Resolving]
  - Urinary tract infection [Recovering/Resolving]

NARRATIVE: CASE EVENT DATE: 20131102
